FAERS Safety Report 16961744 (Version 2)
Quarter: 2020Q1

REPORT INFORMATION
  Report Type: Spontaneous
  Country: US (occurrence: US)
  Receive Date: 20191025
  Receipt Date: 20200210
  Transmission Date: 20200409
  Serious: Yes (Other)
  Sender: FDA-Public Use
  Company Number: US-ALKERMES INC.-ALK-2019-005594

PATIENT
  Age: 66 Year
  Sex: Female

DRUGS (5)
  1. ARISTADA [Suspect]
     Active Substance: ARIPIPRAZOLE LAUROXIL
     Dosage: 882 MG, UNK
     Route: 030
     Dates: start: 2016, end: 2016
  2. ARISTADA [Suspect]
     Active Substance: ARIPIPRAZOLE LAUROXIL
     Dosage: 882 MG, UNK
     Route: 030
     Dates: start: 20190531, end: 20190531
  3. ARISTADA [Suspect]
     Active Substance: ARIPIPRAZOLE LAUROXIL
     Dosage: 882 MG, UNK
     Route: 030
     Dates: start: 20190503, end: 20190503
  4. ARISTADA [Suspect]
     Active Substance: ARIPIPRAZOLE LAUROXIL
     Dosage: 882 MG, UNK
     Route: 030
     Dates: start: 20190405, end: 20190405
  5. ARISTADA [Suspect]
     Active Substance: ARIPIPRAZOLE LAUROXIL
     Indication: SCHIZOPHRENIA
     Dosage: 882 MG, UNK
     Route: 030
     Dates: start: 20190830, end: 20190830

REACTIONS (10)
  - Cardiac disorder [Unknown]
  - Bradycardia [Not Recovered/Not Resolved]
  - Dizziness [Unknown]
  - Paranoia [Not Recovered/Not Resolved]
  - Heart rate irregular [Unknown]
  - Inappropriate schedule of product administration [Not Recovered/Not Resolved]
  - Presyncope [Unknown]
  - Hypertension [Unknown]
  - Respiratory rate increased [Unknown]
  - Vitreous floaters [Unknown]

NARRATIVE: CASE EVENT DATE: 2019
